FAERS Safety Report 19265644 (Version 1)
Quarter: 2021Q2

REPORT INFORMATION
  Report Type: Spontaneous
  Country: None (occurrence: US)
  Receive Date: 20210517
  Receipt Date: 20210517
  Transmission Date: 20210717
  Serious: No
  Sender: FDA-Public Use
  Company Number: US-MILLICENT HOLDINGS LTD.-MILL20210654

PATIENT
  Age: 71 Year
  Sex: Female

DRUGS (4)
  1. INTRAROSA [Suspect]
     Active Substance: PRASTERONE
     Dosage: FULL SUPPOSITORY (6.5 MG)
     Route: 067
     Dates: start: 2021, end: 2021
  2. ARIMIDEX [Concomitant]
     Active Substance: ANASTROZOLE
     Indication: BREAST CANCER
     Dosage: UNKNOWN
     Route: 065
  3. INTRAROSA [Suspect]
     Active Substance: PRASTERONE
     Indication: VULVOVAGINAL DRYNESS
     Dosage: HALF OF SUPPOSITORY (6.5 MG)
     Route: 067
     Dates: start: 202104
  4. ARIMIDEX [Concomitant]
     Active Substance: ANASTROZOLE
     Indication: CANCER IN REMISSION

REACTIONS (4)
  - Off label use [Unknown]
  - Contraindicated product administered [Unknown]
  - Underdose [Unknown]
  - Product prescribing error [Unknown]

NARRATIVE: CASE EVENT DATE: 2021
